FAERS Safety Report 23872603 (Version 2)
Quarter: 2024Q2

REPORT INFORMATION
  Report Type: Report from Study
  Country: CA (occurrence: CA)
  Receive Date: 20240520
  Receipt Date: 20240619
  Transmission Date: 20240716
  Serious: Yes (Other)
  Sender: FDA-Public Use
  Company Number: CA-GLAXOSMITHKLINE-CA2024051953

PATIENT

DRUGS (4)
  1. MEPOLIZUMAB [Suspect]
     Active Substance: MEPOLIZUMAB
     Indication: Eosinophilic granulomatosis with polyangiitis
     Dosage: 300 MG, Q4W
     Route: 058
     Dates: start: 20240223
  2. PREDNISONE [Concomitant]
     Active Substance: PREDNISONE
     Indication: Product used for unknown indication
     Dosage: 15 MG, 20 MG TO 15 MG
     Dates: start: 20240408
  3. PREDNISONE [Concomitant]
     Active Substance: PREDNISONE
     Dosage: 50 MG, 50 MG X 3 DAYS, 25 MG X 4 DAYS, AND THEN THEN 15 MG
  4. PREDNISONE [Concomitant]
     Active Substance: PREDNISONE
     Dosage: 10 MG, QD (FOR 3 DAYS)
     Route: 048
     Dates: start: 20240610

REACTIONS (8)
  - Pneumonia [Unknown]
  - Chest injury [Unknown]
  - Abdominal pain upper [Unknown]
  - Diarrhoea [Unknown]
  - Nasopharyngitis [Unknown]
  - Cough [Unknown]
  - Fatigue [Unknown]
  - Dyspnoea exertional [Unknown]

NARRATIVE: CASE EVENT DATE: 20240501
